FAERS Safety Report 25257360 (Version 1)
Quarter: 2025Q2

REPORT INFORMATION
  Report Type: Spontaneous
  Country: KR (occurrence: KR)
  Receive Date: 20250430
  Receipt Date: 20250430
  Transmission Date: 20250716
  Serious: Yes (Hospitalization)
  Sender: EISAI
  Company Number: KR-LEQ-SPO-25043

PATIENT
  Age: 82 Year
  Sex: Female

DRUGS (1)
  1. LEQEMBI [Suspect]
     Active Substance: LECANEMAB-IRMB
     Indication: Product used for unknown indication
     Dates: start: 20250210, end: 2025

REACTIONS (3)
  - Pollakiuria [Unknown]
  - Urinary incontinence [Unknown]
  - Asthenia [Unknown]

NARRATIVE: CASE EVENT DATE: 20250201
